FAERS Safety Report 8298604-1 (Version None)
Quarter: 2012Q2

REPORT INFORMATION
  Report Type: 
  Country: None (occurrence: None)
  Receive Date: 20120417
  Receipt Date: 20120403
  Transmission Date: 20120825
  Serious: Yes (Other)
  Sender: FDA-Public Use
  Company Number: JP-2012-14609

PATIENT
  Age: 56 Year
  Sex: Male
  Weight: 62 kg

DRUGS (12)
  1. INDAPAMIDE [Suspect]
     Indication: CARDIAC FAILURE
     Dosage: 2 MG MILLIGRAM(S), QD, ORAL
     Route: 048
  2. LASIX [Concomitant]
  3. THYRADIN (THYROID) [Concomitant]
  4. PARAMIDIN (BUCOLOMIE) [Concomitant]
  5. WARFARIN SODIUM [Suspect]
     Indication: ATRIAL FIBRILLATION
     Dosage: 1.5 MG MILLIGRAM(S), QD, ORAL
     Route: 048
     Dates: end: 20120209
  6. LANSOPRAZOLE [Concomitant]
  7. MAGMITT (MAGNESIUM OXIDE) [Concomitant]
  8. SAMSCA [Suspect]
     Indication: CARDIAC FAILURE
     Dosage: 15 MG MILLIGRAM(S), QD, ORAL ; 3.75 MG MILLIGRAM(S), DAILY DOSE, ORAL
     Route: 048
     Dates: start: 20120217
  9. SAMSCA [Suspect]
     Indication: CARDIAC FAILURE
     Dosage: 15 MG MILLIGRAM(S), QD, ORAL ; 3.75 MG MILLIGRAM(S), DAILY DOSE, ORAL
     Route: 048
     Dates: start: 20120207, end: 20120209
  10. AMIODARONE HCL [Concomitant]
  11. HANP (CARPERITIDE) [Concomitant]
  12. SPIRONOLACTONE [Concomitant]

REACTIONS (8)
  - ATRIAL THROMBOSIS [None]
  - THERAPEUTIC RESPONSE DECREASED [None]
  - DEHYDRATION [None]
  - DEPRESSED LEVEL OF CONSCIOUSNESS [None]
  - HAEMOCONCENTRATION [None]
  - INTERNATIONAL NORMALISED RATIO DECREASED [None]
  - TRANSIENT ISCHAEMIC ATTACK [None]
  - CEREBRAL INFARCTION [None]
